FAERS Safety Report 6650420-X (Version None)
Quarter: 2010Q1

REPORT INFORMATION
  Report Type: 
  Country: None (occurrence: None)
  Receive Date: 20100322
  Receipt Date: 20100309
  Transmission Date: 20100710
  Serious: Yes (Other)
  Sender: FDA-Public Use
  Company Number: 2010AL001512

PATIENT
  Age: 68 Year
  Sex: Male

DRUGS (3)
  1. HYDROCORTISONE 2.5% CREAM [Suspect]
     Indication: PREMEDICATION
     Dosage: 100 MG; X1; IV
     Route: 042
     Dates: start: 20100225, end: 20100225
  2. REMICADE [Concomitant]
  3. PIRITON [Concomitant]

REACTIONS (6)
  - COLD SWEAT [None]
  - HEART RATE DECREASED [None]
  - HYPOTENSION [None]
  - INFUSION RELATED REACTION [None]
  - NAUSEA [None]
  - SYNCOPE [None]
